FAERS Safety Report 24680000 (Version 2)
Quarter: 2025Q3

REPORT INFORMATION
  Report Type: Report from Study
  Country: ZA (occurrence: ZA)
  Receive Date: 20241129
  Receipt Date: 20250810
  Transmission Date: 20251020
  Serious: Yes (Hospitalization)
  Sender: ALEXION PHARMACEUTICALS
  Company Number: ZA-AstraZeneca-CH-00755157A

PATIENT
  Age: 80 Year
  Sex: Female

DRUGS (6)
  1. DAPAGLIFLOZIN [Suspect]
     Active Substance: DAPAGLIFLOZIN
     Indication: Diabetes mellitus
  2. AROMASIN [Concomitant]
     Active Substance: EXEMESTANE
     Indication: Neoplasm malignant
  3. SIMVASTATIN [Concomitant]
     Active Substance: SIMVASTATIN
     Indication: Blood cholesterol abnormal
  4. VALSARTAN [Concomitant]
     Active Substance: VALSARTAN
     Indication: Hypertension
  5. AMLODIPINE BESYLATE [Concomitant]
     Active Substance: AMLODIPINE BESYLATE
     Indication: Hypertension
  6. BISOPROLOL FUMARATE [Concomitant]
     Active Substance: BISOPROLOL FUMARATE
     Indication: Hypertension

REACTIONS (2)
  - Somnolence [Unknown]
  - Confusional state [Unknown]
